FAERS Safety Report 4330947-6 (Version None)
Quarter: 2004Q1

REPORT INFORMATION
  Report Type: 
  Country: None (occurrence: None)
  Receive Date: 20040330
  Receipt Date: 20040315
  Transmission Date: 20041129
  Serious: Yes (Hospitalization)
  Sender: FDA-Public Use
  Company Number: 235929

PATIENT
  Age: 1 Day
  Weight: 3.3 kg

DRUGS (11)
  1. NOVORAPID PENFILL(INSULIN ASPART) SOLUTION FOR INJECTION, 100U/ML [Suspect]
     Dosage: 32 IU, QD, SUBCUTANEOUS
     Route: 058
     Dates: start: 20030626
  2. PROTAPHANE PENFIL (INSULIN HUMAN) [Concomitant]
  3. RANIMEX (RANITIDINE HYDROCHLORIDE) [Concomitant]
  4. GAVISCON [Concomitant]
  5. SODIUM CHLORIDE 0.9% [Concomitant]
  6. LIDOCAINE [Concomitant]
  7. SODIUM BICARBONATE IN PLASTIC CONTAINER [Concomitant]
  8. PETHIDINE (PETHIDINE) [Concomitant]
  9. SYNTOCINON [Concomitant]
  10. MORPHINE [Concomitant]
  11. ADALAT [Concomitant]

REACTIONS (3)
  - CAESAREAN SECTION [None]
  - HYPOGLYCAEMIA NEONATAL [None]
  - MATERNAL DRUGS AFFECTING FOETUS [None]
